FAERS Safety Report 21208820 (Version 3)
Quarter: 2022Q3

REPORT INFORMATION
  Report Type: Spontaneous
  Country: US (occurrence: US)
  Receive Date: 20220812
  Receipt Date: 20220823
  Transmission Date: 20221027
  Serious: Yes (Hospitalization, Other)
  Sender: FDA-Public Use
  Company Number: US-ELI_LILLY_AND_COMPANY-US202208001679

PATIENT
  Age: 40 Year
  Sex: Female

DRUGS (3)
  1. EMGALITY [Suspect]
     Active Substance: GALCANEZUMAB-GNLM
     Indication: Migraine
     Dosage: UNK UNK, UNKNOWN
     Route: 065
     Dates: start: 202108, end: 202112
  2. CYANOCOBALAMIN [Suspect]
     Active Substance: CYANOCOBALAMIN
     Indication: Vitamin B12 deficiency
     Dosage: UNK, UNKNOWN
     Route: 065
  3. ESTROGENS [Suspect]
     Active Substance: ESTROGENS
     Indication: Hysterectomy
     Dosage: UNK, UNKNOWN
     Route: 065

REACTIONS (13)
  - Paralysis [Recovered/Resolved]
  - Cerebrovascular accident [Unknown]
  - Amnesia [Not Recovered/Not Resolved]
  - Oropharyngeal discomfort [Recovered/Resolved]
  - Anxiety [Unknown]
  - Depression [Unknown]
  - Nasopharyngitis [Unknown]
  - Viral infection [Unknown]
  - COVID-19 [Unknown]
  - Illness [Unknown]
  - Throat irritation [Unknown]
  - Aphonia [Recovered/Resolved]
  - Oral pain [Unknown]

NARRATIVE: CASE EVENT DATE: 20211201
